FAERS Safety Report 25630313 (Version 2)
Quarter: 2025Q3

REPORT INFORMATION
  Report Type: Spontaneous
  Country: US (occurrence: US)
  Receive Date: 20250801
  Receipt Date: 20250814
  Transmission Date: 20251020
  Serious: No
  Sender: ELI LILLY AND COMPANY
  Company Number: US-ELI_LILLY_AND_COMPANY-US202507027503

PATIENT
  Age: 61 Year
  Sex: Male

DRUGS (8)
  1. MOUNJARO [Suspect]
     Active Substance: TIRZEPATIDE
     Indication: Constipation
     Route: 065
     Dates: start: 20250604, end: 20250717
  2. MOUNJARO [Suspect]
     Active Substance: TIRZEPATIDE
     Indication: Constipation
     Route: 065
     Dates: start: 20250604, end: 20250717
  3. MOUNJARO [Suspect]
     Active Substance: TIRZEPATIDE
     Indication: Constipation
     Route: 065
     Dates: start: 20250604, end: 20250717
  4. MOUNJARO [Suspect]
     Active Substance: TIRZEPATIDE
     Indication: Constipation
     Route: 065
     Dates: start: 20250604, end: 20250717
  5. MOUNJARO [Suspect]
     Active Substance: TIRZEPATIDE
     Indication: Unevaluable event
  6. MOUNJARO [Suspect]
     Active Substance: TIRZEPATIDE
     Indication: Unevaluable event
  7. MOUNJARO [Suspect]
     Active Substance: TIRZEPATIDE
     Indication: Unevaluable event
  8. MOUNJARO [Suspect]
     Active Substance: TIRZEPATIDE
     Indication: Unevaluable event

REACTIONS (5)
  - Off label use [Unknown]
  - Dyspepsia [Unknown]
  - Abdominal pain [Not Recovered/Not Resolved]
  - Nausea [Not Recovered/Not Resolved]
  - Constipation [Not Recovered/Not Resolved]

NARRATIVE: CASE EVENT DATE: 20250618
